FAERS Safety Report 5737812-8 (Version None)
Quarter: 2008Q2

REPORT INFORMATION
  Report Type: 
  Country: None (occurrence: None)
  Receive Date: 20080514
  Receipt Date: 20080509
  Transmission Date: 20081010
  Serious: Yes (Hospitalization, Other)
  Sender: FDA-Public Use
  Company Number: US-MERCK-0709USA00193

PATIENT
  Age: 38 Year
  Sex: Female
  Weight: 67 kg

DRUGS (1)
  1. FOSAMAX [Suspect]
     Indication: OSTEOPOROSIS
     Route: 048
     Dates: start: 19981113, end: 20060901

REACTIONS (8)
  - CERVIX CARCINOMA [None]
  - GINGIVAL DISCOLOURATION [None]
  - GINGIVAL DISORDER [None]
  - GINGIVAL PAIN [None]
  - OSTEONECROSIS [None]
  - PAIN [None]
  - PAIN MANAGEMENT [None]
  - RHEUMATOID ARTHRITIS [None]
